FAERS Safety Report 17237314 (Version 2)
Quarter: 2020Q1

REPORT INFORMATION
  Report Type: Spontaneous
  Country: US (occurrence: US)
  Receive Date: 20200106
  Receipt Date: 20200121
  Transmission Date: 20200409
  Serious: No
  Sender: FDA-Public Use
  Company Number: US-PFIZER INC-2020001753

PATIENT
  Age: 57 Year
  Sex: Female

DRUGS (3)
  1. NALTREXONE [Concomitant]
     Active Substance: NALTREXONE
     Dosage: 5 MG, IN THE EVENING
  2. XELJANZ [Suspect]
     Active Substance: TOFACITINIB CITRATE
     Indication: LICHEN PLANOPILARIS
     Dosage: 5 MG, UNK
  3. NALTREXONE [Concomitant]
     Active Substance: NALTREXONE
     Dosage: 10 MG, IN THE DAY

REACTIONS (4)
  - Product use in unapproved indication [Unknown]
  - Off label use [Unknown]
  - Condition aggravated [Unknown]
  - Mobility decreased [Unknown]
